FAERS Safety Report 5663645-7 (Version None)
Quarter: 2008Q1

REPORT INFORMATION
  Report Type: 
  Country: None (occurrence: None)
  Receive Date: 20080310
  Receipt Date: 20080228
  Transmission Date: 20080703
  Serious: Yes (Disabling)
  Sender: FDA-Public Use
  Company Number: 2006-01345

PATIENT
  Age: 64 Year
  Sex: Female

DRUGS (6)
  1. VELCADE [Suspect]
     Indication: MULTIPLE MYELOMA
     Dosage: 2.30 MG, INTRAVENOUS
     Route: 042
     Dates: start: 20050215, end: 20050405
  2. DEXAMETHASONE TAB [Concomitant]
  3. SODIUM ACETATE [Concomitant]
  4. DURAGESIC-100 [Concomitant]
  5. MORPHINE SULFATE [Concomitant]
  6. LYTOS (CLODRONATE DISODIUM) [Concomitant]

REACTIONS (5)
  - ASTHENIA [None]
  - DRUG INTOLERANCE [None]
  - GASTROINTESTINAL DISORDER [None]
  - GENERAL PHYSICAL HEALTH DETERIORATION [None]
  - NEURALGIA [None]
